FAERS Safety Report 12755885 (Version 1)
Quarter: 2016Q3

REPORT INFORMATION
  Report Type: Spontaneous
  Country: GB (occurrence: GB)
  Receive Date: 20160916
  Receipt Date: 20160916
  Transmission Date: 20161109
  Serious: Yes (Hospitalization, Other)
  Sender: FDA-Public Use
  Company Number: GB-SUNOVION-2016SUN002247

PATIENT

DRUGS (6)
  1. LATUDA [Suspect]
     Active Substance: LURASIDONE HYDROCHLORIDE
     Dosage: 111 MG, UNK
     Route: 048
     Dates: start: 20150730
  2. LATUDA [Suspect]
     Active Substance: LURASIDONE HYDROCHLORIDE
     Dosage: 148 MG, UNK
     Route: 048
     Dates: start: 201508
  3. AMISULPRIDE [Concomitant]
     Active Substance: AMISULPRIDE
     Dosage: 200 MG, BID
     Dates: start: 201511, end: 201601
  4. OLANZAPINE. [Concomitant]
     Active Substance: OLANZAPINE
     Dosage: 20 MG, UNK
     Dates: end: 201505
  5. AMISULPRIDE [Concomitant]
     Active Substance: AMISULPRIDE
     Dosage: 300 MG, BID
     Dates: start: 201601
  6. LATUDA [Suspect]
     Active Substance: LURASIDONE HYDROCHLORIDE
     Indication: SCHIZOPHRENIA
     Dosage: 74 MG, UNK
     Route: 048
     Dates: start: 201504, end: 20150730

REACTIONS (14)
  - Claustrophobia [Recovered/Resolved]
  - Schizophrenia [Unknown]
  - Drug ineffective [Unknown]
  - Anxiety [Recovering/Resolving]
  - Paranoia [Unknown]
  - Hyperventilation [Unknown]
  - Heart rate increased [Unknown]
  - Blood sodium decreased [Unknown]
  - Musculoskeletal stiffness [Unknown]
  - Insomnia [Recovered/Resolved]
  - Polydipsia psychogenic [Unknown]
  - Hypertension [Unknown]
  - Hallucination, auditory [Recovering/Resolving]
  - Fatigue [Unknown]

NARRATIVE: CASE EVENT DATE: 201507
